FAERS Safety Report 7605966-4 (Version None)
Quarter: 2011Q3

REPORT INFORMATION
  Report Type: 
  Country: None (occurrence: None)
  Receive Date: 20110713
  Receipt Date: 20110709
  Transmission Date: 20111222
  Serious: No
  Sender: FDA-Public Use
  Company Number: US-TEVA-290074USA

PATIENT
  Sex: Female
  Weight: 91.708 kg

DRUGS (3)
  1. PRAVASTATIN [Concomitant]
     Indication: BLOOD CHOLESTEROL INCREASED
     Dosage: 20 MILLIGRAM;
  2. LISINOPRIL [Concomitant]
     Indication: HYPERTENSION
     Dosage: 10 MILLIGRAM;
  3. PLAN B ONE-STEP [Suspect]
     Indication: POST COITAL CONTRACEPTION
     Dosage: 1.5 MILLIGRAM;
     Route: 048
     Dates: start: 20110708, end: 20110708

REACTIONS (4)
  - PELVIC PAIN [None]
  - FATIGUE [None]
  - DIZZINESS [None]
  - NAUSEA [None]
